FAERS Safety Report 9466438 (Version 1)
Quarter: 2013Q3

REPORT INFORMATION
  Report Type: Spontaneous
  Country: US (occurrence: None)
  Receive Date: 20130816
  Receipt Date: 20130816
  Transmission Date: 20140515
  Serious: Yes (Other)
  Sender: FDA-Public Use
  Company Number: None

PATIENT
  Age: 82 Year
  Sex: Female
  Weight: 80.74 kg

DRUGS (2)
  1. ACTOS [Suspect]
  2. METFORMIN HCL 1000 [Concomitant]

REACTIONS (4)
  - Abdominal discomfort [None]
  - Nausea [None]
  - Blood pressure increased [None]
  - Vision blurred [None]
